FAERS Safety Report 5996544-1 (Version None)
Quarter: 2008Q4

REPORT INFORMATION
  Report Type: 
  Country: None (occurrence: None)
  Receive Date: 20081212
  Receipt Date: 20081017
  Transmission Date: 20090506
  Serious: No
  Sender: FDA-Public Use
  Company Number: US-ABBOTT-08P-163-0482644-00

PATIENT
  Sex: Female
  Weight: 113.5 kg

DRUGS (3)
  1. HUMIRA [Suspect]
     Indication: RHEUMATOID ARTHRITIS
     Dates: start: 20081010
  2. OXYCODONE HCL [Concomitant]
     Indication: PAIN
  3. CYCLOBENZAPRINE HCL [Concomitant]
     Indication: PAIN

REACTIONS (3)
  - MYALGIA [None]
  - NAUSEA [None]
  - PAIN [None]
